FAERS Safety Report 5625332-0 (Version None)
Quarter: 2008Q1

REPORT INFORMATION
  Report Type: 
  Country: None (occurrence: None)
  Receive Date: 20080211
  Receipt Date: 20080201
  Transmission Date: 20080703
  Serious: Yes (Hospitalization)
  Sender: FDA-Public Use
  Company Number: MEDI-0006510

PATIENT
  Age: 1 Month
  Sex: Male

DRUGS (2)
  1. SYNAGIS [Suspect]
     Indication: ANTIVIRAL PROPHYLAXIS
     Dosage: 50.7 MG, 1 IN 1 M, INTRAMUSCULAR; 1 IN 1M, INTRAMUSCULAR
     Route: 030
     Dates: start: 20071116, end: 20071212
  2. SYNAGIS [Suspect]
     Indication: ANTIVIRAL PROPHYLAXIS
     Dosage: 50.7 MG, 1 IN 1 M, INTRAMUSCULAR; 1 IN 1M, INTRAMUSCULAR
     Route: 030
     Dates: start: 20071116

REACTIONS (3)
  - LISTLESS [None]
  - OXYGEN SATURATION DECREASED [None]
  - POOR SUCKING REFLEX [None]
